FAERS Safety Report 5282783-4 (Version None)
Quarter: 2007Q1

REPORT INFORMATION
  Report Type: 
  Country: None (occurrence: None)
  Receive Date: 20070329
  Receipt Date: 20070329
  Transmission Date: 20070707
  Serious: No
  Sender: FDA-Public Use
  Company Number: None

PATIENT
  Age: 80 Year
  Sex: Male
  Weight: 119.7496 kg

DRUGS (1)
  1. METOPROLOL SUCCINATE EXTENDED RELEASE [Suspect]
     Indication: HYPERTENSION
     Dosage: 25MG  ONE TIME QD  ASTRAZENCA
     Dates: start: 20070220, end: 20070320

REACTIONS (2)
  - DRUG INTOLERANCE [None]
  - RASH [None]
